FAERS Safety Report 8036112-3 (Version None)
Quarter: 2012Q1

REPORT INFORMATION
  Report Type: 
  Country: None (occurrence: None)
  Receive Date: 20120105
  Receipt Date: 20111227
  Transmission Date: 20120608
  Serious: Yes (Hospitalization)
  Sender: FDA-Public Use
  Company Number: 2009SP043141

PATIENT
  Age: 68 Year
  Sex: Female
  Weight: 56 kg

DRUGS (16)
  1. ZOLOFT [Concomitant]
  2. FLOMOX [Concomitant]
  3. REBETOL [Suspect]
     Indication: HEPATITIS C
     Dosage: 600 MG;QD;PO
     Route: 048
     Dates: start: 20091109, end: 20091205
  4. DESMOPRESSIN ACETATE [Concomitant]
  5. NITRAZEPAM [Concomitant]
  6. DEPAS [Concomitant]
  7. LENDORMIN [Concomitant]
  8. RABEPRAZOLE SODIUM [Concomitant]
  9. HOKUNALIN [Concomitant]
  10. URSO 250 [Concomitant]
  11. INTERFERON [Suspect]
     Indication: HEPATITIS C
     Dosage: 6 MIU;QD;INDRP ; 6 MIU;TIW;INDRP
     Route: 041
     Dates: start: 20091125, end: 20091202
  12. INTERFERON [Suspect]
     Indication: HEPATITIS C
     Dosage: 6 MIU;QD;INDRP ; 6 MIU;TIW;INDRP
     Route: 041
     Dates: start: 20091109, end: 20091123
  13. LOXOPROFEN [Concomitant]
  14. MUCOSTA [Concomitant]
  15. METLIGINE [Concomitant]
  16. TOLTERODINE TARTRATE [Concomitant]

REACTIONS (6)
  - AGGRESSION [None]
  - DISSOCIATIVE DISORDER [None]
  - CONDITION AGGRAVATED [None]
  - ABNORMAL BEHAVIOUR [None]
  - HALLUCINATION [None]
  - DELIRIUM [None]
